FAERS Safety Report 21396842 (Version 1)
Quarter: 2022Q3

REPORT INFORMATION
  Report Type: Spontaneous
  Country: US (occurrence: None)
  Receive Date: 20220930
  Receipt Date: 20220930
  Transmission Date: 20221027
  Serious: Yes (Other)
  Sender: FDA-Public Use
  Company Number: None

PATIENT
  Age: 66 Year
  Sex: Female
  Weight: 90 kg

DRUGS (4)
  1. PANTOPRAZOLE SODIUM [Suspect]
     Active Substance: PANTOPRAZOLE SODIUM
     Indication: Gastrooesophageal reflux disease
     Dosage: OTHER QUANTITY : 1 TABLET(S);?FREQUENCY : TWICE A DAY;?
     Route: 048
     Dates: start: 20220907
  2. ARMOUR THYROID [Concomitant]
     Active Substance: THYROID, PORCINE
  3. PEPCID [Concomitant]
     Active Substance: FAMOTIDINE
  4. ACETAMINOPHEN [Concomitant]
     Active Substance: ACETAMINOPHEN

REACTIONS (5)
  - Headache [None]
  - Nausea [None]
  - Dizziness [None]
  - Hypersensitivity [None]
  - Nasal congestion [None]

NARRATIVE: CASE EVENT DATE: 20220929
